FAERS Safety Report 18962686 (Version 1)
Quarter: 2021Q1

REPORT INFORMATION
  Report Type: Spontaneous
  Country: US (occurrence: US)
  Receive Date: 20210303
  Receipt Date: 20210303
  Transmission Date: 20210420
  Serious: Yes (Disabling, Other)
  Sender: FDA-Public Use
  Company Number: US-BAYER-2021-083889

PATIENT
  Age: 57 Year
  Sex: Female

DRUGS (2)
  1. CIPRO [Suspect]
     Active Substance: CIPROFLOXACIN HYDROCHLORIDE
     Indication: URINARY TRACT INFECTION
     Dosage: 500 MG, BID
     Dates: start: 20210215, end: 20210220
  2. CIPRO [Suspect]
     Active Substance: CIPROFLOXACIN HYDROCHLORIDE
     Indication: ABDOMINAL PAIN LOWER

REACTIONS (8)
  - Malaise [Not Recovered/Not Resolved]
  - Pain [None]
  - Dysstasia [Not Recovered/Not Resolved]
  - Hypoaesthesia [None]
  - Feeling abnormal [None]
  - Extremity contracture [None]
  - Nausea [None]
  - Arthralgia [None]

NARRATIVE: CASE EVENT DATE: 202102
